FAERS Safety Report 14942115 (Version 1)
Quarter: 2018Q2

REPORT INFORMATION
  Report Type: Spontaneous
  Country: US (occurrence: US)
  Receive Date: 20180528
  Receipt Date: 20180528
  Transmission Date: 20180711
  Serious: No
  Sender: FDA-Public Use
  Company Number: US-USPHARMA LIMITED-2018-US-000010

PATIENT
  Age: 86 Year
  Sex: Female

DRUGS (1)
  1. NITROGLYCERIN. [Suspect]
     Active Substance: NITROGLYCERIN
     Indication: CHEST PAIN
     Route: 060

REACTIONS (3)
  - Mental status changes [Recovered/Resolved]
  - Lethargy [Recovered/Resolved]
  - Blood pressure decreased [Recovered/Resolved]
